FAERS Safety Report 6644344-1 (Version None)
Quarter: 2010Q1

REPORT INFORMATION
  Report Type: 
  Country: None (occurrence: None)
  Receive Date: 20100322
  Receipt Date: 20100312
  Transmission Date: 20100710
  Serious: Yes (Hospitalization)
  Sender: FDA-Public Use
  Company Number: PHHY2010US15604

PATIENT
  Sex: Female
  Weight: 79.28 kg

DRUGS (1)
  1. EXJADE [Suspect]
     Indication: MYELODYSPLASTIC SYNDROME
     Dosage: 1625 MG DAILY
     Route: 048
     Dates: start: 20080701

REACTIONS (1)
  - GALLBLADDER OPERATION [None]
